FAERS Safety Report 9912109 (Version 3)
Quarter: 2014Q1

REPORT INFORMATION
  Report Type: Report from Study
  Country: US (occurrence: US)
  Receive Date: 20140219
  Receipt Date: 20140317
  Transmission Date: 20141002
  Serious: Yes (Hospitalization)
  Sender: FDA-Public Use
  Company Number: US-BRISTOL-MYERS SQUIBB COMPANY-19208859

PATIENT
  Age: 27 Year
  Sex: Female

DRUGS (9)
  1. EXENATIDE [Suspect]
     Dosage: LAST DOSE-09AUG13
     Route: 058
     Dates: start: 20130809
  2. TYLENOL [Concomitant]
     Dates: start: 20130811, end: 20130811
  3. IBUPROFEN [Concomitant]
     Dosage: LAST DOSE: 12AUG13
     Dates: start: 20130811
  4. NORMAL SALINE [Concomitant]
     Dosage: CIF?1L
     Dates: start: 20130813
  5. ACETAMINOPHEN [Concomitant]
     Dates: start: 20130813
  6. TORADOL [Concomitant]
     Dates: start: 20130813
  7. DECADRON [Concomitant]
     Dates: start: 20130818
  8. AMOXICILLIN + CLAVULANATE [Concomitant]
     Dates: start: 20130817, end: 20130831
  9. METHYLPREDNISOLONE [Concomitant]
     Dosage: 18AUG13: 4MG?19AUG14, 20AUG14, 21AUG14 22AUG14, 23AUG14: 4MG
     Dates: start: 20130817

REACTIONS (1)
  - Tonsillitis [Recovered/Resolved]
